FAERS Safety Report 18428473 (Version 1)
Quarter: 2020Q4

REPORT INFORMATION
  Report Type: Spontaneous
  Country: CA (occurrence: CA)
  Receive Date: 20201026
  Receipt Date: 20201026
  Transmission Date: 20210114
  Serious: Yes (Other)
  Sender: FDA-Public Use
  Company Number: CA-BAYER-2020-226293

PATIENT
  Sex: Male

DRUGS (2)
  1. VITRAKVI [Suspect]
     Active Substance: LAROTRECTINIB
     Dosage: UNK
     Dates: end: 20201014
  2. VITRAKVI [Suspect]
     Active Substance: LAROTRECTINIB
     Dosage: UNK
     Dates: start: 20201016

REACTIONS (2)
  - Pain [Recovered/Resolved]
  - Thrombosis [None]

NARRATIVE: CASE EVENT DATE: 20201014
